FAERS Safety Report 7804717-8 (Version None)
Quarter: 2011Q4

REPORT INFORMATION
  Report Type: 
  Country: None (occurrence: None)
  Receive Date: 20111010
  Receipt Date: 20110927
  Transmission Date: 20120403
  Serious: Yes (Life-Threatening, Hospitalization)
  Sender: FDA-Public Use
  Company Number: PH-JNJFOC-20081201068

PATIENT
  Sex: Female
  Weight: 48 kg

DRUGS (21)
  1. MOBIC [Concomitant]
     Route: 048
     Dates: start: 20070725
  2. GOLIMUMAB [Suspect]
     Indication: RHEUMATOID ARTHRITIS
     Route: 058
     Dates: start: 20080910
  3. GOLIMUMAB [Suspect]
     Route: 058
     Dates: start: 20080521
  4. METHOTREXATE [Suspect]
     Route: 048
     Dates: start: 20070308, end: 20070315
  5. CALTRATE PLUS [Concomitant]
     Route: 048
     Dates: start: 20061009
  6. GOLIMUMAB [Suspect]
     Route: 058
     Dates: start: 20080725
  7. METHOTREXATE [Suspect]
     Route: 048
     Dates: start: 20070329, end: 20070329
  8. METHOTREXATE [Suspect]
     Route: 048
     Dates: start: 20070322, end: 20070522
  9. METHOTREXATE [Suspect]
     Route: 048
     Dates: start: 20070906, end: 20080225
  10. NEUROBION [Concomitant]
     Route: 048
     Dates: start: 20060601
  11. GOLIMUMAB [Suspect]
     Route: 058
     Dates: start: 20080813
  12. GOLIMUMAB [Suspect]
     Route: 058
     Dates: start: 20110706
  13. GOLIMUMAB [Suspect]
     Route: 058
     Dates: start: 20090225
  14. GOLIMUMAB [Suspect]
     Route: 058
     Dates: start: 20080621
  15. GOLIMUMAB [Suspect]
     Route: 058
     Dates: start: 20081010
  16. METHOTREXATE [Suspect]
     Route: 048
     Dates: start: 20070222, end: 20070301
  17. FOLIC ACID [Concomitant]
     Route: 048
     Dates: start: 20070223
  18. GOLIMUMAB [Suspect]
     Route: 058
     Dates: start: 20081119
  19. METHOTREXATE [Suspect]
     Indication: RHEUMATOID ARTHRITIS
     Route: 048
     Dates: start: 20070405, end: 20070830
  20. ISONIAZID [Concomitant]
     Route: 048
     Dates: start: 20070220
  21. PREDNISONE [Concomitant]
     Route: 048
     Dates: start: 20061206

REACTIONS (3)
  - SEPSIS [None]
  - PNEUMONIA [None]
  - JAUNDICE CHOLESTATIC [None]
